FAERS Safety Report 5399808-8 (Version None)
Quarter: 2007Q3

REPORT INFORMATION
  Report Type: 
  Country: None (occurrence: None)
  Receive Date: 20070730
  Receipt Date: 20070720
  Transmission Date: 20080115
  Serious: Yes (Hospitalization, Other)
  Sender: FDA-Public Use
  Company Number: MX-ELI_LILLY_AND_COMPANY-MX200706004688

PATIENT
  Age: 57 Year
  Sex: Female

DRUGS (3)
  1. ZYPREXA [Suspect]
     Dosage: UNK MG, UNKNOWN
     Route: 065
     Dates: end: 20070101
  2. DILANTIN KAPSEAL [Concomitant]
     Dosage: UNK, UNKNOWN
     Route: 065
  3. ANTIDEPRESSANTS [Concomitant]
     Dosage: UNK, UNKNOWN
     Route: 065

REACTIONS (4)
  - HEAD TITUBATION [None]
  - LOSS OF CONSCIOUSNESS [None]
  - PAIN IN EXTREMITY [None]
  - RESTLESS LEGS SYNDROME [None]
